FAERS Safety Report 9078503 (Version 1)
Quarter: 2013Q1

REPORT INFORMATION
  Report Type: Report from Study
  Country: US (occurrence: US)
  Receive Date: 20130130
  Receipt Date: 20130130
  Transmission Date: 20140127
  Serious: No
  Sender: FDA-Public Use
  Company Number: US-ABBOTT-12P-163-0971303-00

PATIENT
  Age: 41 Year
  Sex: Male

DRUGS (2)
  1. HUMIRA 40 MG/0.8 ML PEN [Suspect]
     Indication: PSORIATIC ARTHROPATHY
  2. AMBIEN [Concomitant]
     Indication: INSOMNIA
     Dosage: EACH NIGHT
     Route: 048

REACTIONS (2)
  - Device malfunction [Not Recovered/Not Resolved]
  - Arthralgia [Not Recovered/Not Resolved]
